FAERS Safety Report 10657869 (Version 2)
Quarter: 2014Q4

REPORT INFORMATION
  Report Type: Spontaneous
  Country: US (occurrence: US)
  Receive Date: 20141217
  Receipt Date: 20141217
  Transmission Date: 20150529
  Serious: No
  Sender: FDA-Public Use
  Company Number: US-GLAXOSMITHKLINE-A1055414A

PATIENT

DRUGS (14)
  1. VOTRIENT [Suspect]
     Active Substance: PAZOPANIB HYDROCHLORIDE
     Indication: RENAL CANCER
     Dates: start: 20130922
  2. AMOXICILLIN. [Concomitant]
     Active Substance: AMOXICILLIN
  3. AMLODIPINE [Concomitant]
     Active Substance: AMLODIPINE BESYLATE
  4. VOTRIENT [Suspect]
     Active Substance: PAZOPANIB HYDROCHLORIDE
     Dates: start: 20130922
  5. METFORMIN [Concomitant]
     Active Substance: METFORMIN HYDROCHLORIDE
  6. VOTRIENT [Suspect]
     Active Substance: PAZOPANIB HYDROCHLORIDE
     Indication: MALIGNANT NEOPLASM OF RENAL PELVIS
     Dosage: 200 MG TABLETS, 4 TABLETS DAILY, 800 MG TOTAL DAILY DOSE
     Route: 065
     Dates: start: 20130922
  7. KLOR-CON [Concomitant]
     Active Substance: POTASSIUM CHLORIDE
  8. DOXAZOCIN [Concomitant]
     Active Substance: DOXAZOSIN MESYLATE
  9. LEVOFLOXACIN. [Concomitant]
     Active Substance: LEVOFLOXACIN
  10. OXYCODONE + ACETAMINOPHEN [Concomitant]
  11. LYRICA [Concomitant]
     Active Substance: PREGABALIN
  12. METHYLPREDNISONE [Concomitant]
     Active Substance: METHYLPREDNISOLONE
  13. RAMIPRIL. [Concomitant]
     Active Substance: RAMIPRIL
  14. NEXIUM [Concomitant]
     Active Substance: ESOMEPRAZOLE MAGNESIUM

REACTIONS (5)
  - Dysgeusia [Unknown]
  - Decreased appetite [Unknown]
  - Nausea [Unknown]
  - Salivary hypersecretion [Unknown]
  - Vomiting [Unknown]
